FAERS Safety Report 11772568 (Version 15)
Quarter: 2017Q1

REPORT INFORMATION
  Report Type: Report from Study
  Country: BR (occurrence: BR)
  Receive Date: 20151124
  Receipt Date: 20170228
  Transmission Date: 20170428
  Serious: Yes (Other)
  Sender: FDA-Public Use
  Company Number: PHHY2015BR153123

PATIENT
  Age: 71 Year
  Sex: Female
  Weight: 103 kg

DRUGS (9)
  1. AFINITOR [Suspect]
     Active Substance: EVEROLIMUS
     Indication: BREAST CANCER METASTATIC
     Dosage: 1 DF, QD (10 MG)
     Route: 048
     Dates: start: 201506
  2. AROMASIN [Concomitant]
     Active Substance: EXEMESTANE
     Indication: BREAST CANCER METASTATIC
     Dosage: 1 DF OF 5 MG, QD
     Route: 048
     Dates: start: 201410
  3. TAPAZOL [Concomitant]
     Indication: PRODUCT USED FOR UNKNOWN INDICATION
     Dosage: 1 DF, QD
     Route: 048
  4. AROMASIN [Concomitant]
     Active Substance: EXEMESTANE
     Dosage: 1 DF OF 5 MG, QD
     Route: 048
  5. LOSARTAN. [Concomitant]
     Active Substance: LOSARTAN
     Indication: HYPERTENSION
     Dosage: 2 DF, QD
     Route: 048
  6. DIAMICRON [Concomitant]
     Active Substance: GLICLAZIDE
     Indication: PRODUCT USED FOR UNKNOWN INDICATION
     Dosage: 1 DF, QD
     Route: 048
  7. AFINITOR [Suspect]
     Active Substance: EVEROLIMUS
     Dosage: 2 DF, QD (OF 5 MG)
     Route: 048
  8. AFINITOR [Suspect]
     Active Substance: EVEROLIMUS
     Dosage: 1 DF, QD (OF 10 MG)
     Route: 048
     Dates: end: 20160713
  9. AFINITOR [Suspect]
     Active Substance: EVEROLIMUS
     Dosage: 1 DF, QD (OF 10 MG)
     Route: 048
     Dates: start: 20160721

REACTIONS (24)
  - Cataract [Not Recovered/Not Resolved]
  - Nervous system disorder [Unknown]
  - Skin irritation [Recovering/Resolving]
  - Nail infection [Not Recovered/Not Resolved]
  - Localised infection [Unknown]
  - Thyroid neoplasm [Unknown]
  - Anxiety [Unknown]
  - Nail disorder [Unknown]
  - Nail injury [Not Recovered/Not Resolved]
  - Second primary malignancy [Unknown]
  - Pruritus [Not Recovered/Not Resolved]
  - Weight decreased [Not Recovered/Not Resolved]
  - Body height decreased [Unknown]
  - Pain in extremity [Unknown]
  - Mouth injury [Recovering/Resolving]
  - Skin wound [Unknown]
  - Peripheral swelling [Recovering/Resolving]
  - Skin atrophy [Recovering/Resolving]
  - Oedema peripheral [Recovered/Resolved]
  - Onychoclasis [Not Recovered/Not Resolved]
  - Vision blurred [Not Recovered/Not Resolved]
  - Goitre [Unknown]
  - Malaise [Unknown]
  - Erythema [Unknown]

NARRATIVE: CASE EVENT DATE: 201511
